FAERS Safety Report 26126604 (Version 1)
Quarter: 2025Q4

REPORT INFORMATION
  Report Type: Spontaneous
  Country: GB (occurrence: GB)
  Receive Date: 20251205
  Receipt Date: 20251205
  Transmission Date: 20260118
  Serious: Yes (Other)
  Sender: ELI LILLY AND COMPANY
  Company Number: None

PATIENT
  Sex: Female

DRUGS (2)
  1. ABEMACICLIB [Suspect]
     Active Substance: ABEMACICLIB
     Indication: Breast cancer
     Dosage: 100 MG, UNKNOWN
     Route: 065
  2. LETROZOLE [Suspect]
     Active Substance: LETROZOLE
     Indication: Breast cancer
     Dosage: 2 MG, UNKNOWN
     Route: 065

REACTIONS (12)
  - Depressed mood [Unknown]
  - Oral mucosal eruption [Recovering/Resolving]
  - Anxiety [Unknown]
  - Neck pain [Unknown]
  - Coccydynia [Unknown]
  - Pain in extremity [Recovered/Resolved]
  - Sleep disorder [Unknown]
  - Feeling abnormal [Unknown]
  - Contusion [Recovered/Resolved]
  - Mouth ulceration [Unknown]
  - Fatigue [Unknown]
  - Decreased appetite [Unknown]

NARRATIVE: CASE EVENT DATE: 20251124
